FAERS Safety Report 4399579-8 (Version None)
Quarter: 2004Q3

REPORT INFORMATION
  Report Type: 
  Country: None (occurrence: None)
  Receive Date: 20040716
  Receipt Date: 20040713
  Transmission Date: 20050211
  Serious: Yes (Hospitalization)
  Sender: FDA-Public Use
  Company Number: US-MERCK-0407USA01161

PATIENT
  Sex: Male

DRUGS (1)
  1. SINGULAIR [Suspect]
     Indication: ASTHMA
     Route: 048
     Dates: end: 20040101

REACTIONS (3)
  - ALLERGIC GRANULOMATOUS ANGIITIS [None]
  - PNEUMONIA [None]
  - RESPIRATORY FAILURE [None]
